FAERS Safety Report 23764999 (Version 1)
Quarter: 2024Q2

REPORT INFORMATION
  Report Type: Spontaneous
  Country: CA (occurrence: CA)
  Receive Date: 20240420
  Receipt Date: 20240420
  Transmission Date: 20240716
  Serious: Yes (Congenital Anomaly)
  Sender: FDA-Public Use
  Company Number: CA-ABBVIE-5727663

PATIENT

DRUGS (1)
  1. QULIPTA [Suspect]
     Active Substance: ATOGEPANT
     Indication: Maternal exposure timing unspecified
     Route: 064

REACTIONS (1)
  - Heart disease congenital [Unknown]

NARRATIVE: CASE EVENT DATE: 20240101
